FAERS Safety Report 18610068 (Version 1)
Quarter: 2020Q4

REPORT INFORMATION
  Report Type: Report from Study
  Country: IT (occurrence: IT)
  Receive Date: 20201214
  Receipt Date: 20201214
  Transmission Date: 20210114
  Serious: Yes (Other)
  Sender: FDA-Public Use
  Company Number: IT-MYLANLABS-2020M1100295

PATIENT
  Age: 41 Year
  Sex: Male

DRUGS (1)
  1. BRUFEN 600 MG GRANULATO EFFERVESCENTE [Suspect]
     Active Substance: IBUPROFEN
     Indication: PRODUCT USED FOR UNKNOWN INDICATION
     Dosage: 600 MILLIGRAM, TOTAL
     Route: 048
     Dates: start: 20201014, end: 20201014

REACTIONS (2)
  - Urticaria [Recovering/Resolving]
  - Mechanical urticaria [Recovering/Resolving]

NARRATIVE: CASE EVENT DATE: 20201014
